FAERS Safety Report 23944598 (Version 2)
Quarter: 2025Q1

REPORT INFORMATION
  Report Type: Spontaneous
  Country: US (occurrence: US)
  Receive Date: 20240606
  Receipt Date: 20250103
  Transmission Date: 20250409
  Serious: Yes (Hospitalization)
  Sender: PFIZER
  Company Number: US-PFIZER INC-PV202400072912

PATIENT
  Age: 77 Year
  Sex: Male
  Weight: 145 kg

DRUGS (2)
  1. VYNDAQEL [Suspect]
     Active Substance: TAFAMIDIS MEGLUMINE
     Indication: Cardiac amyloidosis
     Dosage: SIG: TAKE 4 CAPSULES BY MOUTH 1 (ONE) TIME EACH DAY
     Route: 048
  2. VYNDAMAX [Suspect]
     Active Substance: TAFAMIDIS
     Dosage: ONE 61 MG TAFAMIDIS CAPSULE ORALLY ONCE DAILY.
     Route: 048

REACTIONS (1)
  - Cardiac disorder [Unknown]
